FAERS Safety Report 6111755-2 (Version None)
Quarter: 2009Q1

REPORT INFORMATION
  Report Type: 
  Country: None (occurrence: None)
  Receive Date: 20090311
  Receipt Date: 20090303
  Transmission Date: 20090719
  Serious: Yes (Other)
  Sender: FDA-Public Use
  Company Number: US-ELI_LILLY_AND_COMPANY-US200902005033

PATIENT
  Age: 49 Year
  Sex: Male

DRUGS (6)
  1. XIGRIS [Suspect]
     Indication: SEPSIS
     Dosage: 24 D/F, UNK
     Route: 042
     Dates: start: 20090216, end: 20090220
  2. DOPAMINE HCL [Concomitant]
     Indication: VASOPRESSIVE THERAPY
     Dates: start: 20090216
  3. NOREPINEPHRINE [Concomitant]
     Indication: VASOPRESSIVE THERAPY
     Dates: start: 20090216
  4. PROPOFOL [Concomitant]
     Indication: SEDATION
     Dates: start: 20090216
  5. VANCOMYCIN [Concomitant]
     Route: 042
  6. LEVAQUIN [Concomitant]

REACTIONS (2)
  - EXTRAVASATION [None]
  - THROMBOCYTOPENIA [None]
